FAERS Safety Report 13463923 (Version 1)
Quarter: 2017Q2

REPORT INFORMATION
  Report Type: Spontaneous
  Country: US (occurrence: US)
  Receive Date: 20170420
  Receipt Date: 20170420
  Transmission Date: 20170830
  Serious: Yes (Other)
  Sender: FDA-Public Use
  Company Number: US-ROCHE-705401

PATIENT
  Sex: Female
  Weight: 47.6 kg

DRUGS (2)
  1. LORAZEPAM. [Concomitant]
     Active Substance: LORAZEPAM
     Route: 065
  2. ISOTRETINOIN [Suspect]
     Active Substance: ISOTRETINOIN
     Indication: ACNE CYSTIC
     Route: 048
     Dates: start: 200912, end: 20100506

REACTIONS (3)
  - Chapped lips [Not Recovered/Not Resolved]
  - Depression [Not Recovered/Not Resolved]
  - Bone pain [Not Recovered/Not Resolved]
